FAERS Safety Report 5226155-7 (Version None)
Quarter: 2007Q1

REPORT INFORMATION
  Report Type: 
  Country: None (occurrence: None)
  Receive Date: 20070201
  Receipt Date: 20070122
  Transmission Date: 20070707
  Serious: Yes (Death, Life-Threatening, Other)
  Sender: FDA-Public Use
  Company Number: GB-JNJFOC-20070105812

PATIENT
  Sex: Female
  Weight: 55 kg

DRUGS (5)
  1. REMICADE [Suspect]
     Indication: RHEUMATOID ARTHRITIS
     Route: 042
  2. GOLD [Concomitant]
     Route: 065
  3. CELEBREX [Concomitant]
     Route: 065
  4. CITALOPRAM HYDROBROMIDE [Concomitant]
     Route: 065
  5. CO-PROXAMOL [Concomitant]
     Route: 065

REACTIONS (1)
  - CEREBROVASCULAR DISORDER [None]
